FAERS Safety Report 16784557 (Version 1)
Quarter: 2019Q3

REPORT INFORMATION
  Report Type: Spontaneous
  Country: US (occurrence: US)
  Receive Date: 20190717
  Receipt Date: 20190717
  Transmission Date: 20191005
  Serious: Yes (Death)
  Sender: FDA-Public Use
  Company Number: None

PATIENT
  Age: 40 Year
  Sex: Male
  Weight: 82.7 kg

DRUGS (1)
  1. PAZOPANIB [Suspect]
     Active Substance: PAZOPANIB
     Dates: end: 20180606

REACTIONS (5)
  - Dyspnoea exertional [None]
  - Disease progression [None]
  - Pulmonary mass [None]
  - Fatigue [None]
  - Tachypnoea [None]

NARRATIVE: CASE EVENT DATE: 20180709
